FAERS Safety Report 9128062 (Version 1)
Quarter: 2013Q1

REPORT INFORMATION
  Report Type: Spontaneous
  Country: AU (occurrence: AU)
  Receive Date: 20130228
  Receipt Date: 20130228
  Transmission Date: 20140127
  Serious: Yes (Hospitalization)
  Sender: FDA-Public Use
  Company Number: AU-SANOFI-AVENTIS-2013SA016072

PATIENT
  Sex: 0

DRUGS (4)
  1. CLEXANE [Suspect]
     Indication: PRODUCT USED FOR UNKNOWN INDICATION
     Route: 065
  2. PHENYTOIN SODIUM [Interacting]
     Indication: PRODUCT USED FOR UNKNOWN INDICATION
     Route: 065
     Dates: start: 1980
  3. WARFARIN SODIUM [Suspect]
     Indication: PRODUCT USED FOR UNKNOWN INDICATION
     Route: 065
  4. WARFARIN SODIUM [Suspect]
     Indication: PRODUCT USED FOR UNKNOWN INDICATION

REACTIONS (10)
  - Anticonvulsant drug level decreased [Unknown]
  - Drug interaction [Unknown]
  - Toxicity to various agents [Unknown]
  - Convulsion [Unknown]
  - Dizziness [Unknown]
  - Fall [Unknown]
  - Facial bones fracture [Unknown]
  - Anticonvulsant drug level increased [Unknown]
  - Arthropathy [Unknown]
  - Deep vein thrombosis [Unknown]
